FAERS Safety Report 11749286 (Version 1)
Quarter: 2015Q4

REPORT INFORMATION
  Report Type: Spontaneous
  Country: US (occurrence: None)
  Receive Date: 20151116
  Receipt Date: 20151116
  Transmission Date: 20160304
  Serious: No
  Sender: FDA-Public Use
  Company Number: None

PATIENT
  Sex: Female

DRUGS (16)
  1. MAGNESIUM [Concomitant]
     Active Substance: MAGNESIUM
  2. OXYCODONE [Concomitant]
     Active Substance: OXYCODONE
  3. PROTONIX [Concomitant]
     Active Substance: PANTOPRAZOLE SODIUM
  4. ATENOLOL. [Concomitant]
     Active Substance: ATENOLOL
  5. COZAAR [Concomitant]
     Active Substance: LOSARTAN POTASSIUM
  6. TEA [Concomitant]
     Active Substance: TEA LEAF
  7. OXYCONTIN [Concomitant]
     Active Substance: OXYCODONE HYDROCHLORIDE
  8. VITAMIN D3 [Concomitant]
     Active Substance: CHOLECALCIFEROL
  9. ENOXAPARIN [Suspect]
     Active Substance: ENOXAPARIN
     Indication: VENOUS THROMBOSIS
     Route: 058
     Dates: start: 20140304
  10. ASPIRIN. [Concomitant]
     Active Substance: ASPIRIN
  11. CYMBALTA [Concomitant]
     Active Substance: DULOXETINE HYDROCHLORIDE
  12. LOVENOX [Concomitant]
     Active Substance: ENOXAPARIN SODIUM
  13. ZOLOFT [Concomitant]
     Active Substance: SERTRALINE HYDROCHLORIDE
  14. ANASTROZOLE. [Concomitant]
     Active Substance: ANASTROZOLE
  15. DEPLIN [Concomitant]
     Active Substance: LEVOMEFOLATE CALCIUM
  16. ONDANSETRON [Concomitant]
     Active Substance: ONDANSETRON

REACTIONS (1)
  - Injection site infection [None]
